FAERS Safety Report 22145528 (Version 1)
Quarter: 2023Q1

REPORT INFORMATION
  Report Type: Spontaneous
  Country: US (occurrence: US)
  Receive Date: 20230328
  Receipt Date: 20230328
  Transmission Date: 20230418
  Serious: No
  Sender: FDA-Public Use
  Company Number: US-JNJFOC-20230350498

PATIENT
  Age: 15 Year
  Sex: Male

DRUGS (2)
  1. RISPERDAL [Suspect]
     Active Substance: RISPERIDONE
     Indication: Thinking abnormal
     Dosage: VARYING DOSES OF 1 MG AND 2 MG
     Route: 048
     Dates: start: 19970228
  2. RISPERDAL [Suspect]
     Active Substance: RISPERIDONE
     Indication: Sexually inappropriate behaviour

REACTIONS (1)
  - Sedation [Unknown]

NARRATIVE: CASE EVENT DATE: 19970301
